FAERS Safety Report 18399462 (Version 2)
Quarter: 2020Q4

REPORT INFORMATION
  Report Type: Report from Study
  Country: US (occurrence: US)
  Receive Date: 20201019
  Receipt Date: 20201021
  Transmission Date: 20210114
  Serious: Yes (Other)
  Sender: FDA-Public Use
  Company Number: US-GLAXOSMITHKLINE-US2020AMR173598

PATIENT
  Sex: Female
  Weight: 56 kg

DRUGS (2)
  1. NIRAPARIB [Suspect]
     Active Substance: NIRAPARIB
     Dosage: 522 MG, QD
     Dates: end: 202010
  2. NIRAPARIB [Suspect]
     Active Substance: NIRAPARIB
     Indication: OVARIAN CANCER
     Dosage: 200 MG, QD
     Dates: start: 20200822

REACTIONS (9)
  - Cataract [Unknown]
  - Blood pressure increased [Not Recovered/Not Resolved]
  - Migraine [Recovering/Resolving]
  - Blood pressure fluctuation [Unknown]
  - Constipation [Unknown]
  - Drug ineffective [Unknown]
  - Asthenia [Unknown]
  - Poor quality sleep [Recovering/Resolving]
  - Insomnia [Unknown]
